FAERS Safety Report 24104579 (Version 1)
Quarter: 2024Q3

REPORT INFORMATION
  Report Type: Spontaneous
  Country: CN (occurrence: CN)
  Receive Date: 20240717
  Receipt Date: 20240717
  Transmission Date: 20241016
  Serious: Yes (Life-Threatening, Other)
  Sender: PFIZER
  Company Number: CN-PFIZER INC-202400214847

PATIENT
  Age: 40 Year
  Sex: Male

DRUGS (12)
  1. MEROPENEM [Suspect]
     Active Substance: MEROPENEM
     Indication: Stomatococcal infection
     Dosage: 1 G, 3X/DAY
  2. MEROPENEM [Suspect]
     Active Substance: MEROPENEM
     Indication: Endocarditis
  3. CEFTRIAXONE [Suspect]
     Active Substance: CEFTRIAXONE\CEFTRIAXONE SODIUM
     Indication: Stomatococcal infection
     Dosage: 2 G, 2X/DAY
     Dates: end: 20220320
  4. CEFTRIAXONE [Suspect]
     Active Substance: CEFTRIAXONE\CEFTRIAXONE SODIUM
     Indication: Endocarditis
  5. PENICILLIN G SODIUM [Suspect]
     Active Substance: PENICILLIN G SODIUM
     Indication: Stomatococcal infection
     Dosage: 3.2 MIU, 4X/DAY
  6. PENICILLIN G SODIUM [Suspect]
     Active Substance: PENICILLIN G SODIUM
     Indication: Endocarditis
  7. VANCOMYCIN [Suspect]
     Active Substance: VANCOMYCIN
     Indication: Stomatococcal infection
     Dosage: 1 G, 2X/DAY
  8. VANCOMYCIN [Suspect]
     Active Substance: VANCOMYCIN
     Indication: Endocarditis
  9. AMIKACIN [Suspect]
     Active Substance: AMIKACIN
     Indication: Stomatococcal infection
     Dosage: 0.75 G, 2X/DAY
  10. AMIKACIN [Suspect]
     Active Substance: AMIKACIN
     Indication: Endocarditis
  11. RIFAMPIN [Suspect]
     Active Substance: RIFAMPIN
     Indication: Stomatococcal infection
     Dosage: 0.3 G, 4X/DAY
     Dates: end: 20220320
  12. RIFAMPIN [Suspect]
     Active Substance: RIFAMPIN
     Indication: Endocarditis

REACTIONS (2)
  - Drug ineffective for unapproved indication [Unknown]
  - Off label use [Unknown]
